FAERS Safety Report 13235110 (Version 3)
Quarter: 2017Q2

REPORT INFORMATION
  Report Type: Spontaneous
  Country: US (occurrence: US)
  Receive Date: 20170215
  Receipt Date: 20170505
  Transmission Date: 20170830
  Serious: Yes (Hospitalization)
  Sender: FDA-Public Use
  Company Number: US-PFIZER INC-2017062375

PATIENT
  Age: 54 Year
  Sex: Female

DRUGS (6)
  1. HYDROXYCHLOROQUINE [Concomitant]
     Active Substance: HYDROXYCHLOROQUINE
     Dosage: 100 MG, 2X/DAY
  2. NEURONTIN [Suspect]
     Active Substance: GABAPENTIN
     Indication: NERVE INJURY
     Dosage: 100 MG, 3X/DAY
  3. AMITRIPTYLINE [Concomitant]
     Active Substance: AMITRIPTYLINE
     Dosage: 10 MG, 1X/DAY (BEFORE BED) QHS
  4. LYRICA [Concomitant]
     Active Substance: PREGABALIN
     Dosage: 25 MG, 3X/DAY
  5. NEURONTIN [Suspect]
     Active Substance: GABAPENTIN
     Dosage: 300 MG, 3X/DAY
  6. EFFEXOR [Concomitant]
     Active Substance: VENLAFAXINE HYDROCHLORIDE
     Dosage: 75 MG, 1X/DAY (BEFORE BED)QHS

REACTIONS (6)
  - Pruritus [Unknown]
  - Confusional state [Recovered/Resolved]
  - Myalgia [Unknown]
  - Drug hypersensitivity [Recovered/Resolved]
  - Drug ineffective for unapproved indication [Recovered/Resolved]
  - Burning sensation [Unknown]
